FAERS Safety Report 17254816 (Version 3)
Quarter: 2020Q4

REPORT INFORMATION
  Report Type: Report from Study
  Country: US (occurrence: US)
  Receive Date: 20200109
  Receipt Date: 20201102
  Transmission Date: 20210113
  Serious: Yes (Hospitalization)
  Sender: FDA-Public Use
  Company Number: US-EXELIXIS-CABO-19023804

PATIENT
  Sex: Female

DRUGS (29)
  1. CABOMETYX [Suspect]
     Active Substance: CABOZANTINIB S-MALATE
     Dosage: 40 MG, QOD (1 HOUR BEFOR OR 2 HOURS AFTER MEAL)
     Route: 048
  2. CABOMETYX [Suspect]
     Active Substance: CABOZANTINIB S-MALATE
     Dosage: 40 MG (1 TIME PER DAY FOR 2 DAYS ON THEN 1 DAY OFF AND THEN REPEAT; 1 HOUR BEFORE OR 2 HOURS AFTER M
     Route: 048
  3. POTASSIUM [Concomitant]
     Active Substance: POTASSIUM
     Dosage: UNK
  4. TUMS CHEWIES [Concomitant]
     Dosage: UNK
  5. CABOMETYX [Suspect]
     Active Substance: CABOZANTINIB S-MALATE
     Dosage: 40 MG, QD (1 HOUR BEFORE OR 2 HOURS AFTER A MEAL)
     Route: 048
  6. LANTUS XR [Concomitant]
     Active Substance: INSULIN GLARGINE
     Dosage: UNK
  7. OMEPRAZOLE. [Concomitant]
     Active Substance: OMEPRAZOLE
     Dosage: UNK
  8. PREDNISONE. [Concomitant]
     Active Substance: PREDNISONE
     Dosage: UNK
  9. CABOMETYX [Suspect]
     Active Substance: CABOZANTINIB S-MALATE
     Indication: RENAL DISORDER
     Dosage: 40 MG, QD (1 HOUR BEFORE OR 2 HOURS AFTER A MEAL)
     Route: 048
  10. METFORMIN HCL [Concomitant]
     Active Substance: METFORMIN HYDROCHLORIDE
     Dosage: UNK
  11. PIOGLITAZONE HCL [Concomitant]
     Active Substance: PIOGLITAZONE
     Dosage: UNK
  12. VITAMIN D [Concomitant]
     Active Substance: VITAMIN D NOS
     Dosage: UNK
  13. SOMA [Suspect]
     Active Substance: CARISOPRODOL
     Indication: PRODUCT USED FOR UNKNOWN INDICATION
     Dosage: UNK
  14. CALCIUM [Concomitant]
     Active Substance: CALCIUM
     Dosage: UNK
  15. SIMVASTATIN. [Concomitant]
     Active Substance: SIMVASTATIN
     Dosage: UNK
  16. MULTIVITAMINS [Concomitant]
     Active Substance: VITAMINS
     Dosage: UNK
  17. CABOMETYX [Suspect]
     Active Substance: CABOZANTINIB S-MALATE
     Dosage: 40 MG (1 TIME PER DAY FOR 2 DAYS ON THEN 1 DAY OFF AND THEN REPEAT; 1 HOUR BEFORE OR 2 HOURS AFTER M
     Route: 048
  18. AMLODIPINE BESYLATE. [Concomitant]
     Active Substance: AMLODIPINE BESYLATE
     Dosage: UNK
  19. FLUOXETINE HYDROCHLORIDE. [Concomitant]
     Active Substance: FLUOXETINE HYDROCHLORIDE
     Dosage: UNK
  20. CABOMETYX [Suspect]
     Active Substance: CABOZANTINIB S-MALATE
     Indication: RENAL CANCER
     Dosage: 60 MG, QD (1 HOUR BEFORE OR 2 HOURS AFTER A MEAL)
     Route: 048
     Dates: start: 20180330
  21. CABOMETYX [Suspect]
     Active Substance: CABOZANTINIB S-MALATE
     Dosage: 40 MG, QOD (1 HOUR BEFOR OR 2 HOURS AFTER MEAL)
     Route: 048
  22. FUROSEMIDE. [Concomitant]
     Active Substance: FUROSEMIDE
     Dosage: UNK
  23. INVEGA [Concomitant]
     Active Substance: PALIPERIDONE
     Dosage: UNK
  24. IRON [Concomitant]
     Active Substance: IRON
     Dosage: UNK
  25. NOVOLOG [Concomitant]
     Active Substance: INSULIN ASPART
     Dosage: UNK
  26. QUETIAPINE. [Concomitant]
     Active Substance: QUETIAPINE
     Dosage: UNK
  27. RAMIPRIL. [Concomitant]
     Active Substance: RAMIPRIL
     Dosage: UNK
  28. ROLAIDS [Concomitant]
     Active Substance: CALCIUM CARBONATE\MAGNESIUM HYDROXIDE
     Dosage: UNK
  29. VITAMIN C [Concomitant]
     Active Substance: ASCORBIC ACID
     Dosage: UNK

REACTIONS (19)
  - Taste disorder [Not Recovered/Not Resolved]
  - Blood sodium decreased [Not Recovered/Not Resolved]
  - Decreased appetite [Not Recovered/Not Resolved]
  - Oral pain [Not Recovered/Not Resolved]
  - Oxygen saturation decreased [Not Recovered/Not Resolved]
  - Hallucination [Not Recovered/Not Resolved]
  - Anorectal infection bacterial [Not Recovered/Not Resolved]
  - Sleep disorder [Not Recovered/Not Resolved]
  - Depression [Not Recovered/Not Resolved]
  - Arthralgia [Not Recovered/Not Resolved]
  - Weight decreased [Not Recovered/Not Resolved]
  - Product dose omission issue [Unknown]
  - Fatigue [Not Recovered/Not Resolved]
  - Inappropriate schedule of product administration [Unknown]
  - Dehydration [Not Recovered/Not Resolved]
  - Diarrhoea [Not Recovered/Not Resolved]
  - Confusional state [Not Recovered/Not Resolved]
  - Drug hypersensitivity [Unknown]
  - Rectal haemorrhage [Not Recovered/Not Resolved]
